FAERS Safety Report 9904351 (Version 2)
Quarter: 2014Q1

REPORT INFORMATION
  Report Type: Spontaneous
  Country: US (occurrence: US)
  Receive Date: 20140218
  Receipt Date: 20140314
  Transmission Date: 20141002
  Serious: No
  Sender: FDA-Public Use
  Company Number: US-PFIZER INC-2014044636

PATIENT
  Age: 82 Year
  Sex: Female
  Weight: 49.89 kg

DRUGS (1)
  1. XANAX [Suspect]
     Indication: ANXIETY
     Dosage: 0.5 MG, DAILY

REACTIONS (2)
  - Depression [Unknown]
  - Lethargy [Unknown]
